FAERS Safety Report 16230142 (Version 3)
Quarter: 2019Q3

REPORT INFORMATION
  Report Type: Spontaneous
  Country: JP (occurrence: JP)
  Receive Date: 20190423
  Receipt Date: 20190829
  Transmission Date: 20191004
  Serious: Yes (Hospitalization)
  Sender: FDA-Public Use
  Company Number: JP-EISAI MEDICAL RESEARCH-EC-2019-055345

PATIENT
  Age: 74 Year
  Sex: Male

DRUGS (2)
  1. LENVIMA [Suspect]
     Active Substance: LENVATINIB
     Indication: HEPATOCELLULAR CARCINOMA
     Route: 048
     Dates: start: 20190409, end: 2019
  2. NINJIN^ YOEITO [Concomitant]
     Indication: FATIGUE
     Dosage: DOSE AND FREQUENCY UNKNOWN
     Route: 048
     Dates: start: 201904

REACTIONS (4)
  - Fatigue [Recovering/Resolving]
  - Stomatitis [Recovering/Resolving]
  - Hypothyroidism [Not Recovered/Not Resolved]
  - Gingival pain [Recovering/Resolving]

NARRATIVE: CASE EVENT DATE: 201904
